FAERS Safety Report 8709985 (Version 2)
Quarter: 2012Q4

REPORT INFORMATION
  Report Type: 
  Country: DE (occurrence: DE)
  Receive Date: 20120806
  Receipt Date: 20121004
  Transmission Date: 20130627
  Serious: Yes (Other)
  Sender: FDA-Public Use
  Company Number: DE-B.I. PHARMACEUTICALS,INC./RIDGEFIELD-2012-DE-01762DE

PATIENT

DRUGS (1)
  1. PRADAXA [Suspect]
     Dosage: 110 mg

REACTIONS (1)
  - Cerebrovascular accident [Unknown]
